FAERS Safety Report 9191158 (Version 1)
Quarter: 2013Q1

REPORT INFORMATION
  Report Type: Other
  Country: GB (occurrence: GB)
  Receive Date: 20130326
  Receipt Date: 20130326
  Transmission Date: 20140127
  Serious: Yes (Other)
  Sender: FDA-Public Use
  Company Number: GB-WATSON-2013-04339

PATIENT
  Sex: Female

DRUGS (1)
  1. AMLODIPINE (UNKNOWN) [Suspect]
     Indication: HYPERTENSION
     Dosage: 5 MG, DAILY  TAKING AMLODIPINE FROM ALMOST THE SAME TIME SINCE
     Route: 065
     Dates: start: 2010

REACTIONS (3)
  - Headache [Unknown]
  - Flushing [Unknown]
  - Feeling hot [Unknown]
